FAERS Safety Report 12581296 (Version 11)
Quarter: 2018Q2

REPORT INFORMATION
  Report Type: Spontaneous
  Country: US (occurrence: US)
  Receive Date: 20160721
  Receipt Date: 20180613
  Transmission Date: 20180711
  Serious: Yes (Hospitalization)
  Sender: FDA-Public Use
  Company Number: US-ACTELION-A-NJ2016-139411

PATIENT
  Age: 36 Year
  Sex: Female
  Weight: 136.5 kg

DRUGS (6)
  1. VELETRI [Suspect]
     Active Substance: EPOPROSTENOL
     Indication: PULMONARY ARTERIAL HYPERTENSION
     Dosage: 29.5 NG/KG, PER MIN
     Route: 042
  2. VELETRI [Suspect]
     Active Substance: EPOPROSTENOL
     Dosage: 34.5 NG/KG, PER MIN
     Route: 042
  3. VELETRI [Suspect]
     Active Substance: EPOPROSTENOL
     Dosage: UNK
     Route: 042
  4. REVATIO [Concomitant]
     Active Substance: SILDENAFIL CITRATE
  5. VELETRI [Suspect]
     Active Substance: EPOPROSTENOL
     Dosage: 22.25 NG/KG, PER MIN
     Route: 042
     Dates: start: 20130619
  6. VERAPAMIL [Concomitant]
     Active Substance: VERAPAMIL HYDROCHLORIDE

REACTIONS (16)
  - Blood calcium decreased [Unknown]
  - Feeling abnormal [Unknown]
  - Walking distance test abnormal [Unknown]
  - Pulmonary arterial hypertension [Unknown]
  - Influenza [Unknown]
  - Neck pain [Unknown]
  - Catheter site discharge [Unknown]
  - Catheter site pruritus [Unknown]
  - Headache [Unknown]
  - Catheter management [Unknown]
  - Vomiting [Unknown]
  - Device damage [Unknown]
  - Staphylococcal infection [Unknown]
  - Chest pain [Unknown]
  - Catheter site related reaction [Unknown]
  - Oxygen saturation decreased [Unknown]

NARRATIVE: CASE EVENT DATE: 20170329
